FAERS Safety Report 6922472-0 (Version None)
Quarter: 2010Q3

REPORT INFORMATION
  Report Type: 
  Country: None (occurrence: None)
  Receive Date: 20100813
  Receipt Date: 20100809
  Transmission Date: 20110219
  Serious: Yes (Other)
  Sender: FDA-Public Use
  Company Number: JP-BAYER-200911447BYL

PATIENT
  Age: 24 Year
  Sex: Male

DRUGS (1)
  1. INTERFERON BETA [Suspect]
     Indication: PRODUCT USED FOR UNKNOWN INDICATION
     Route: 030

REACTIONS (1)
  - MONONEUROPATHY MULTIPLEX [None]
